FAERS Safety Report 14526119 (Version 1)
Quarter: 2018Q1

REPORT INFORMATION
  Report Type: Spontaneous
  Country: US (occurrence: US)
  Receive Date: 20180212
  Receipt Date: 20180212
  Transmission Date: 20180509
  Serious: No
  Sender: FDA-Public Use
  Company Number: None

PATIENT
  Age: 17 Year
  Sex: Female

DRUGS (1)
  1. HUMIRA [Suspect]
     Active Substance: ADALIMUMAB
     Indication: CROHN^S DISEASE
     Route: 058
     Dates: start: 20170718

REACTIONS (6)
  - Condition aggravated [None]
  - Acne [None]
  - Epistaxis [None]
  - Arthralgia [None]
  - Nasal congestion [None]
  - Crohn^s disease [None]

NARRATIVE: CASE EVENT DATE: 20180212
